FAERS Safety Report 7525958-3 (Version None)
Quarter: 2011Q2

REPORT INFORMATION
  Report Type: 
  Country: None (occurrence: None)
  Receive Date: 20110606
  Receipt Date: 20110527
  Transmission Date: 20111010
  Serious: Yes (Other)
  Sender: FDA-Public Use
  Company Number: US-ASTRAZENECA-2011SE33474

PATIENT
  Age: 78 Year
  Sex: Male

DRUGS (1)
  1. TOPROL-XL [Suspect]
     Route: 048

REACTIONS (4)
  - NEOPLASM MALIGNANT [None]
  - POLYP [None]
  - MASS [None]
  - COLONOSCOPY [None]
